FAERS Safety Report 4654837-4 (Version None)
Quarter: 2005Q2

REPORT INFORMATION
  Report Type: 
  Country: None (occurrence: None)
  Receive Date: 20050505
  Receipt Date: 20050502
  Transmission Date: 20051028
  Serious: No
  Sender: FDA-Public Use
  Company Number: 004759

PATIENT
  Age: 66 Year
  Sex: Female

DRUGS (5)
  1. NORETHINDRONE ACETATE(NORETHINDRONE ACTATE) TABLET, 5MG [Suspect]
     Indication: HORMONE REPLACEMENT THERAPY
     Dosage: 5.00 MG, QD, ORAL
     Route: 048
  2. REMIFEMIN(CIMICIFUGA RACEMOSA ROOT) [Suspect]
     Indication: MENOPAUSE
     Dosage: ORAL
     Route: 048
     Dates: start: 20010101
  3. ESTRADIOL [Suspect]
     Indication: HORMONE REPLACEMENT THERAPY
     Dosage: QD
  4. LEVOXYL (LEVOTHYROXINE SODIUM0 [Concomitant]
  5. ATENOLOL [Concomitant]

REACTIONS (4)
  - DRUG INEFFECTIVE [None]
  - ENDOMETRIAL HYPERTROPHY [None]
  - UTERINE POLYP [None]
  - WEIGHT INCREASED [None]
